FAERS Safety Report 17373901 (Version 1)
Quarter: 2020Q1

REPORT INFORMATION
  Report Type: Spontaneous
  Country: BG (occurrence: BG)
  Receive Date: 20200206
  Receipt Date: 20200206
  Transmission Date: 20200409
  Serious: Yes (Other)
  Sender: FDA-Public Use
  Company Number: BG-US-PROVELL PHARMACEUTICALS LLC-E2B_90074606

PATIENT
  Age: 41 Year
  Sex: Female
  Weight: 90 kg

DRUGS (1)
  1. EUTHYROX [Suspect]
     Active Substance: LEVOTHYROXINE SODIUM
     Indication: PRODUCT USED FOR UNKNOWN INDICATION
     Dates: start: 20150419, end: 20200116

REACTIONS (3)
  - Myalgia [Recovered/Resolved]
  - Hypertension [Recovered/Resolved]
  - Depression [Recovered/Resolved]

NARRATIVE: CASE EVENT DATE: 20200104
